FAERS Safety Report 19931748 (Version 4)
Quarter: 2021Q4

REPORT INFORMATION
  Report Type: Report from Study
  Country: FR (occurrence: FR)
  Receive Date: 20211007
  Receipt Date: 20211124
  Transmission Date: 20220303
  Serious: Yes (Death, Other)
  Sender: FDA-Public Use
  Company Number: FR-GILEAD-2021-0551502

PATIENT
  Age: 51 Year
  Sex: Female
  Weight: 54 kg

DRUGS (14)
  1. SACITUZUMAB GOVITECAN [Suspect]
     Active Substance: SACITUZUMAB GOVITECAN
     Indication: Breast cancer
     Dosage: UNK
     Route: 065
     Dates: start: 20210721, end: 20210908
  2. SKENAN [Concomitant]
     Active Substance: MORPHINE SULFATE
  3. MORPHINE SULFATE [Concomitant]
     Active Substance: MORPHINE SULFATE
  4. EMEND [Concomitant]
     Active Substance: APREPITANT
  5. ONDANSETRON [Concomitant]
     Active Substance: ONDANSETRON
  6. PREDNISOLONE [Concomitant]
     Active Substance: PREDNISOLONE
  7. FILGRASTIM [Concomitant]
     Active Substance: FILGRASTIM
  8. METOCLOPRAMIDE [Concomitant]
     Active Substance: METOCLOPRAMIDE
  9. ACETAMINOPHEN [Concomitant]
     Active Substance: ACETAMINOPHEN
  10. SODIUM BICARBONATE [Concomitant]
     Active Substance: SODIUM BICARBONATE
  11. IMODIUM [Concomitant]
     Active Substance: LOPERAMIDE HYDROCHLORIDE
  12. POLYETHYLENE GLYCOL 3350\POTASSIUM CHLORIDE\SODIUM BICARBONATE\SODIUM [Concomitant]
     Active Substance: POLYETHYLENE GLYCOL 3350\POTASSIUM CHLORIDE\SODIUM BICARBONATE\SODIUM CHLORIDE
  13. XANAX [Concomitant]
     Active Substance: ALPRAZOLAM
  14. LYRICA [Concomitant]
     Active Substance: PREGABALIN

REACTIONS (5)
  - Death [Fatal]
  - Liver disorder [Fatal]
  - Disease progression [Fatal]
  - Liver injury [Fatal]
  - Hepatic fibrosis [Not Recovered/Not Resolved]

NARRATIVE: CASE EVENT DATE: 20210901
